FAERS Safety Report 6787409-6 (Version None)
Quarter: 2010Q2

REPORT INFORMATION
  Report Type: 
  Country: None (occurrence: None)
  Receive Date: 20100623
  Receipt Date: 20070509
  Transmission Date: 20101027
  Serious: Yes (Other)
  Sender: FDA-Public Use
  Company Number: US-PFIZER INC-2007037639

PATIENT
  Sex: Female
  Weight: 46.7 kg

DRUGS (2)
  1. SUTENT [Suspect]
     Indication: RENAL CELL CARCINOMA
     Dates: start: 20070321
  2. WARFARIN SODIUM [Concomitant]

REACTIONS (1)
  - URINARY BLADDER HAEMORRHAGE [None]
